FAERS Safety Report 15905322 (Version 1)
Quarter: 2019Q1

REPORT INFORMATION
  Report Type: Report from Study
  Country: AR (occurrence: AR)
  Receive Date: 20190204
  Receipt Date: 20190204
  Transmission Date: 20190417
  Serious: Yes (Other)
  Sender: FDA-Public Use
  Company Number: PHHY2019AR022449

PATIENT
  Sex: Female

DRUGS (1)
  1. ENTRESTO [Suspect]
     Active Substance: SACUBITRIL\VALSARTAN
     Indication: CARDIAC FAILURE
     Dosage: 1 DF, Q12H (SACUBITRIL 24 MG/ VALSARTAN 26 MG)
     Route: 065
     Dates: start: 201808

REACTIONS (4)
  - Diabetes mellitus [Not Recovered/Not Resolved]
  - Malaise [Not Recovered/Not Resolved]
  - Overweight [Not Recovered/Not Resolved]
  - Palpitations [Not Recovered/Not Resolved]
